FAERS Safety Report 4559167-7 (Version None)
Quarter: 2005Q1

REPORT INFORMATION
  Report Type: 
  Country: None (occurrence: None)
  Receive Date: 20050120
  Receipt Date: 20050120
  Transmission Date: 20050727
  Serious: Yes (Hospitalization)
  Sender: FDA-Public Use
  Company Number: None

PATIENT

DRUGS (2)
  1. CISPLATIN [Suspect]
     Dosage: IV
     Route: 042
  2. ETOPOSIDE [Suspect]
     Dosage: IV
     Route: 042

REACTIONS (1)
  - PYREXIA [None]
